FAERS Safety Report 17410299 (Version 2)
Quarter: 2020Q1

REPORT INFORMATION
  Report Type: Spontaneous
  Country: US (occurrence: US)
  Receive Date: 20200212
  Receipt Date: 20200325
  Transmission Date: 20200409
  Serious: No
  Sender: FDA-Public Use
  Company Number: US-SA-2020SA036155

PATIENT
  Age: 16 Year
  Sex: Male
  Weight: 57.6 kg

DRUGS (1)
  1. DUPIXENT [Suspect]
     Active Substance: DUPILUMAB
     Indication: DERMATITIS ATOPIC
     Dosage: 300 MG, QOW
     Route: 058
     Dates: start: 201911

REACTIONS (2)
  - Product use issue [Unknown]
  - Rebound eczema [Unknown]

NARRATIVE: CASE EVENT DATE: 201911
